FAERS Safety Report 7533788-1 (Version None)
Quarter: 2011Q2

REPORT INFORMATION
  Report Type: 
  Country: None (occurrence: None)
  Receive Date: 20110608
  Receipt Date: 20110601
  Transmission Date: 20111010
  Serious: Yes (Life-Threatening)
  Sender: FDA-Public Use
  Company Number: US-UCBSA-034451

PATIENT
  Sex: Male
  Weight: 47 kg

DRUGS (18)
  1. LOVAZA [Concomitant]
     Indication: CROHN'S DISEASE
  2. MESALAMINE [Concomitant]
     Indication: CROHN'S DISEASE
     Dates: start: 19991203, end: 20040628
  3. NEXIUM [Concomitant]
     Indication: PEPTIC ULCER
     Route: 048
  4. BUDESONIDE [Concomitant]
     Indication: CROHN'S DISEASE
     Dates: start: 20090121
  5. CALCIUM WITH VITAMIN D [Concomitant]
     Indication: CROHN'S DISEASE
     Dosage: 800MG (CALCIUM); 200 U(VITAMIN D)
  6. BOOST [Concomitant]
     Indication: CROHN'S DISEASE
  7. TOPROL-XL [Concomitant]
     Indication: TACHYCARDIA
     Route: 048
  8. DOXEPIN [Concomitant]
     Indication: DEPRESSION
     Route: 048
  9. MESALAMINE [Concomitant]
     Route: 048
     Dates: start: 20040628
  10. CIMZIA [Suspect]
     Indication: CROHN'S DISEASE
     Route: 058
     Dates: start: 20110222
  11. DOXAZOSIN MESYLATE [Concomitant]
     Indication: BENIGN PROSTATIC HYPERPLASIA
     Route: 048
  12. POTASSIUM CITRATE [Concomitant]
     Indication: CROHN'S DISEASE
  13. ASPIRIN [Concomitant]
     Indication: CORONARY ARTERY DISEASE
     Route: 048
  14. FIORINAL [Concomitant]
     Dosage: 1 CAPSULE EVERY 4-6 HOURS
     Route: 048
  15. PREDNISONE [Concomitant]
     Indication: CROHN'S DISEASE
     Dates: start: 19991203, end: 20090609
  16. PREDNISONE [Concomitant]
     Dates: start: 20100214
  17. MULTI-VITAMINS [Concomitant]
     Indication: CROHN'S DISEASE
  18. ASPIRIN [Concomitant]
     Indication: CROHN'S DISEASE

REACTIONS (1)
  - BLADDER CANCER RECURRENT [None]
